FAERS Safety Report 22067656 (Version 2)
Quarter: 2023Q2

REPORT INFORMATION
  Report Type: Spontaneous
  Country: ES (occurrence: ES)
  Receive Date: 20230307
  Receipt Date: 20230504
  Transmission Date: 20230721
  Serious: Yes (Life-Threatening, Hospitalization, Other)
  Sender: FDA-Public Use
  Company Number: ES-AEMPS-1335278

PATIENT
  Age: 64 Year
  Sex: Male
  Weight: 116.2 kg

DRUGS (3)
  1. TRAMADOL [Interacting]
     Active Substance: TRAMADOL
     Indication: Back pain
     Dosage: 50 MILLIGRAM, 1 TOTAL, 1 AMPOULE IN A SINGLE DOSE
     Route: 042
     Dates: start: 20221203, end: 20221203
  2. BUPRENORPHINE [Interacting]
     Active Substance: BUPRENORPHINE
     Indication: Cancer pain
     Dosage: 40 MILLIGRAM, EVERY WEEK,1 PATCH EVERY 3-4 DAYS
     Route: 062
     Dates: start: 20220303, end: 20221203
  3. MORPHINE SULFATE [Interacting]
     Active Substance: MORPHINE SULFATE
     Indication: Back pain
     Dosage: 45 MILLIGRAM, TWO TIMES A DAY 1 TABLET OF 30MG + 1 TABLET OF 15MG EVERY 12 HOURS
     Route: 048
     Dates: start: 20221203, end: 20221206

REACTIONS (6)
  - Depressed level of consciousness [Recovered/Resolved]
  - Acute respiratory failure [Recovered/Resolved]
  - Pneumonia aspiration [Recovered/Resolved]
  - Ileus paralytic [Recovered/Resolved]
  - Respiratory acidosis [Recovered/Resolved]
  - Drug interaction [Unknown]

NARRATIVE: CASE EVENT DATE: 20221204
